FAERS Safety Report 18449092 (Version 1)
Quarter: 2020Q4

REPORT INFORMATION
  Report Type: Spontaneous
  Country: US (occurrence: US)
  Receive Date: 20201031
  Receipt Date: 20201031
  Transmission Date: 20210114
  Serious: Yes (Other)
  Sender: FDA-Public Use
  Company Number: US-NAPPMUNDI-USA-2020-0151960

PATIENT
  Sex: Female
  Weight: 86.17 kg

DRUGS (1)
  1. OXYCODONE HYDROCHLORIDE (SIMILAR TO NDA 22-272) [Suspect]
     Active Substance: OXYCODONE HYDROCHLORIDE
     Indication: PAIN
     Dosage: 15 MG, SEE TEXT
     Route: 048
     Dates: start: 2015, end: 202005

REACTIONS (3)
  - Euphoric mood [Unknown]
  - Drug ineffective [Unknown]
  - Drug abuse [Not Recovered/Not Resolved]
